FAERS Safety Report 9960440 (Version 1)
Quarter: 2014Q1

REPORT INFORMATION
  Report Type: Spontaneous
  Country: US (occurrence: US)
  Receive Date: 20140305
  Receipt Date: 20140305
  Transmission Date: 20141002
  Serious: No
  Sender: FDA-Public Use
  Company Number: US-ABBVIE-13P-163-1110395-00

PATIENT
  Sex: Female
  Weight: 47.22 kg

DRUGS (2)
  1. HUMIRA [Suspect]
     Indication: PRODUCT USED FOR UNKNOWN INDICATION
  2. FOSAMAX [Concomitant]
     Indication: BONE DENSITY ABNORMAL

REACTIONS (3)
  - Device malfunction [Unknown]
  - Injection site pain [Not Recovered/Not Resolved]
  - Incorrect dose administered [Unknown]
